FAERS Safety Report 18388358 (Version 2)
Quarter: 2024Q2

REPORT INFORMATION
  Report Type: Spontaneous
  Country: ES (occurrence: ES)
  Receive Date: 20201015
  Receipt Date: 20240531
  Transmission Date: 20240716
  Serious: Yes (Life-Threatening, Hospitalization, Other)
  Sender: FDA-Public Use
  Company Number: ES-KRKA-ES2020K15125LIT

PATIENT
  Age: 64 Year
  Sex: Female
  Weight: 59 kg

DRUGS (25)
  1. OXYCODONE HYDROCHLORIDE [Suspect]
     Active Substance: OXYCODONE HYDROCHLORIDE
     Indication: Product used for unknown indication
     Dosage: UNK
     Route: 048
  2. NALOXONE [Suspect]
     Active Substance: NALOXONE
     Indication: Product used for unknown indication
     Dosage: UNK
     Route: 065
  3. MIRTAZAPINE [Suspect]
     Active Substance: MIRTAZAPINE
     Indication: Depression
     Dosage: 15 MILLIGRAM, DAILY
     Route: 048
  4. MIRTAZAPINE [Suspect]
     Active Substance: MIRTAZAPINE
     Dosage: UNK
     Route: 065
  5. PANTOPRAZOLE [Suspect]
     Active Substance: PANTOPRAZOLE
     Indication: Product used for unknown indication
     Dosage: UNK
     Route: 065
  6. ENOXAPARIN [Suspect]
     Active Substance: ENOXAPARIN
     Indication: Pulmonary embolism
     Dosage: UNK
     Route: 065
  7. ENOXAPARIN [Suspect]
     Active Substance: ENOXAPARIN
     Dosage: UNK
     Route: 058
     Dates: start: 201501
  8. CALCIUM CARBONATE\VITAMIN D [Suspect]
     Active Substance: CALCIUM CARBONATE\VITAMIN D
     Indication: Product used for unknown indication
     Dosage: UNK
     Route: 065
  9. ZOPICLONE [Suspect]
     Active Substance: ZOPICLONE
     Indication: Product used for unknown indication
     Dosage: UNK
     Route: 048
  10. DEXAMETHASONE [Suspect]
     Active Substance: DEXAMETHASONE
     Indication: Metastases to central nervous system
     Dosage: UNK
     Route: 065
  11. DEXAMETHASONE [Suspect]
     Active Substance: DEXAMETHASONE
     Dosage: 4 MILLIGRAM, DAILY
     Route: 048
  12. NADROPARIN CALCIUM [Suspect]
     Active Substance: NADROPARIN CALCIUM
     Indication: Product used for unknown indication
     Dosage: UNK
     Route: 065
  13. TORSEMIDE [Suspect]
     Active Substance: TORSEMIDE
     Indication: Product used for unknown indication
     Dosage: UNK
     Route: 048
  14. CALCIUM\CHOLECALCIFEROL [Suspect]
     Active Substance: CALCIUM\CHOLECALCIFEROL
     Indication: Product used for unknown indication
     Dosage: SUPPORTIVE THERAPY
     Route: 048
  15. ALECTINIB [Suspect]
     Active Substance: ALECTINIB
     Indication: Product used for unknown indication
     Dosage: 900 MILLIGRAM, DAILY
     Route: 048
     Dates: start: 20150731, end: 20150821
  16. ALECTINIB [Suspect]
     Active Substance: ALECTINIB
     Indication: Non-small cell lung cancer
     Dosage: 1200 MILLIGRAM, DAILY
     Route: 048
     Dates: start: 20150619, end: 20150703
  17. ALECTINIB [Suspect]
     Active Substance: ALECTINIB
     Indication: Product used for unknown indication
     Dosage: 600 MILLIGRAM, DAILY
     Route: 048
     Dates: start: 20150916
  18. NADROPARIN CALCIUM [Suspect]
     Active Substance: NADROPARIN CALCIUM
     Indication: Pulmonary embolism
     Dosage: 0.6 MILLILITER EVERY DAY
     Route: 058
     Dates: start: 20150101
  19. ENOXAPARIN SODIUM [Suspect]
     Active Substance: ENOXAPARIN SODIUM
     Indication: Pulmonary embolism
     Dosage: 1.2 MILLILITER, DAILY
     Route: 058
     Dates: start: 20150101, end: 20150703
  20. TORSEMIDE [Suspect]
     Active Substance: TORSEMIDE
     Indication: Oedema
     Dosage: 5 MILLIGRAM, DAILY
     Route: 048
  21. NALOXONE HYDROCHLORIDE\OXYCODONE HYDROCHLORIDE [Suspect]
     Active Substance: NALOXONE HYDROCHLORIDE\OXYCODONE HYDROCHLORIDE
     Indication: Pain
     Dosage: 10/5 MG
     Route: 048
  22. ZOPICLONE [Suspect]
     Active Substance: ZOPICLONE
     Indication: Insomnia
     Dosage: 7.5 MILLIGRAM, DAILY
     Route: 048
  23. PANTOPRAZOLE [Suspect]
     Active Substance: PANTOPRAZOLE
     Indication: Gastritis
     Dosage: 80 MILLIGRAM, DAILY
     Route: 048
  24. UNSPECIFIED INGREDIENT [Concomitant]
     Active Substance: UNSPECIFIED INGREDIENT
     Indication: Product used for unknown indication
     Dosage: UNK
     Route: 065
  25. NUTRIFLEX [AMINO ACIDS NOS;CARBOHYDRATES NOS;ELECTROLYTES NOS] [Concomitant]
     Indication: Cachexia
     Dosage: 1875 MILLILITER, DAILY
     Route: 042
     Dates: start: 20150907, end: 20150924

REACTIONS (23)
  - Pelvic pain [Unknown]
  - Gastritis [Recovered/Resolved]
  - Pyelonephritis [Recovered/Resolved]
  - Diverticulitis [Recovered/Resolved with Sequelae]
  - Retroperitoneal haematoma [Recovered/Resolved]
  - Decreased appetite [Unknown]
  - Peritonitis [Recovered/Resolved with Sequelae]
  - Large intestine perforation [Recovered/Resolved with Sequelae]
  - General physical health deterioration [Unknown]
  - Pelvic haematoma [Recovered/Resolved]
  - Blood creatine phosphokinase increased [Recovered/Resolved]
  - Large intestine perforation [Unknown]
  - Arthralgia [Not Recovered/Not Resolved]
  - Pyrexia [Recovering/Resolving]
  - Sepsis [Recovering/Resolving]
  - Retroperitoneal haemorrhage [Recovered/Resolved]
  - Rhabdomyolysis [Recovered/Resolved with Sequelae]
  - Nausea [Unknown]
  - Transaminases increased [Recovered/Resolved]
  - Cachexia [Unknown]
  - Arthralgia [Unknown]
  - General physical health deterioration [Unknown]
  - Metastases to central nervous system [Unknown]

NARRATIVE: CASE EVENT DATE: 20150630
